FAERS Safety Report 9289904 (Version 2)
Quarter: 2013Q2

REPORT INFORMATION
  Report Type: Spontaneous
  Country: JP (occurrence: JP)
  Receive Date: 20130515
  Receipt Date: 20130607
  Transmission Date: 20140414
  Serious: No
  Sender: FDA-Public Use
  Company Number: JP-009507513-1305JPN006854

PATIENT
  Age: 50 Year
  Sex: Female

DRUGS (6)
  1. EMEND [Suspect]
     Indication: PROPHYLAXIS OF NAUSEA AND VOMITING
     Dosage: 125 MG, ONCE
     Route: 048
     Dates: start: 20121129, end: 20121129
  2. EMEND [Suspect]
     Dosage: 80 MG, QD
     Route: 048
     Dates: start: 20121130, end: 20121201
  3. OXALIPLATIN [Suspect]
     Indication: COLON CANCER
     Dosage: 130 MG/M2, ONCE
     Route: 041
     Dates: start: 20121129, end: 20121129
  4. CAPECITABINE [Suspect]
     Indication: COLON CANCER
     Dosage: 2068 MG/M2, ONCE
     Route: 048
     Dates: start: 20121129, end: 20121129
  5. ALOXI [Concomitant]
     Dosage: UNK
     Dates: start: 20121129, end: 20121129
  6. DEXAMETHASONE SODIUM PHOSPHATE [Concomitant]
     Dosage: UNK
     Dates: start: 20121129, end: 20121129

REACTIONS (5)
  - Neuropathy peripheral [Not Recovered/Not Resolved]
  - Malaise [Not Recovered/Not Resolved]
  - Nausea [Not Recovered/Not Resolved]
  - Decreased appetite [Not Recovered/Not Resolved]
  - Diarrhoea [Recovered/Resolved]
